FAERS Safety Report 9536628 (Version 1)
Quarter: 2013Q2

REPORT INFORMATION
  Report Type: Spontaneous
  Country: US (occurrence: None)
  Receive Date: 20130517
  Receipt Date: 20130517
  Transmission Date: 20140414
  Serious: Yes (Other)
  Sender: FDA-Public Use
  Company Number: 1000042844

PATIENT
  Age: 83 Year
  Sex: Male

DRUGS (7)
  1. VIIBRYD [Suspect]
     Indication: DEPRESSION
     Route: 048
     Dates: start: 201211, end: 2012
  2. TERAZOSIN (TERAZOSIN) (TERAZOSIN) [Concomitant]
  3. FINASTERIDE (FINASTERIDE) (FINASTERIDE) [Concomitant]
  4. NEXIUM (ESOMEPRAZOLE) (ESOMEPRAZOLE) [Concomitant]
  5. DETROL LA (TOLTERODINE L -TARTRATE) (TOLTERODINE L-TARTRATE) [Concomitant]
  6. SIMVASTATIN (SIMVASTATIN) (SIMVASTATIN) [Concomitant]
  7. FISH OIL (FISH OIL) (FISH OIL) [Concomitant]

REACTIONS (1)
  - Dizziness [None]
